FAERS Safety Report 23531670 (Version 2)
Quarter: 2024Q1

REPORT INFORMATION
  Report Type: Spontaneous
  Country: US (occurrence: US)
  Receive Date: 20240216
  Receipt Date: 20240318
  Transmission Date: 20240410
  Serious: No
  Sender: FDA-Public Use
  Company Number: US-Ipsen Biopharmaceuticals, Inc.-2024-02606

PATIENT
  Age: 45 Year
  Sex: Female
  Weight: 92.39 kg

DRUGS (5)
  1. TAZVERIK [Suspect]
     Active Substance: TAZEMETOSTAT HYDROBROMIDE
     Indication: Soft tissue sarcoma
     Dosage: 800 MG TWICE DAILY
     Route: 048
  2. BUPROPION HYDROCHLORIDE [Concomitant]
     Active Substance: BUPROPION HYDROCHLORIDE
  3. AMLODIPINE BESYLATE [Concomitant]
     Active Substance: AMLODIPINE BESYLATE
  4. LISINOPRIL [Concomitant]
     Active Substance: LISINOPRIL
  5. HCTZ STOOL SOFTENER [Concomitant]

REACTIONS (2)
  - Malaise [Recovered/Resolved]
  - Product dose omission issue [Unknown]
